FAERS Safety Report 4932984-7 (Version None)
Quarter: 2006Q1

REPORT INFORMATION
  Report Type: 
  Country: None (occurrence: None)
  Receive Date: 20060301
  Receipt Date: 20060301
  Transmission Date: 20060701
  Serious: Yes (Hospitalization, Other)
  Sender: FDA-Public Use
  Company Number: None

PATIENT
  Sex: Female
  Weight: 54 kg

DRUGS (6)
  1. CYCLOPHOSPHAMIDE [Suspect]
     Indication: BURKITT'S LYMPHOMA
     Dosage: 1650 MG
     Dates: start: 20060112, end: 20060117
  2. CYTARABINE [Suspect]
     Dosage: 40 MG
     Dates: start: 20060112, end: 20060112
  3. DEXAMETHASONE [Suspect]
     Dosage: 80 MG
     Dates: start: 20060112, end: 20060116
  4. DOXORUBICIN HCL [Suspect]
     Dosage: 80 MG
     Dates: start: 20060115, end: 20060116
  5. RITUXIMAB MOAB C2B8 ANTI CD20 [Suspect]
     Dosage: 600 MG
     Dates: start: 20060120, end: 20060120
  6. HYDROCORTISONE [Concomitant]

REACTIONS (8)
  - CENTRAL LINE INFECTION [None]
  - HAEMODIALYSIS [None]
  - KLEBSIELLA INFECTION [None]
  - OXYGEN SATURATION DECREASED [None]
  - RENAL FAILURE ACUTE [None]
  - SEPTIC SHOCK [None]
  - SINUS TACHYCARDIA [None]
  - THROMBOCYTOPENIA [None]
